FAERS Safety Report 5332784-2 (Version None)
Quarter: 2007Q2

REPORT INFORMATION
  Report Type: 
  Country: None (occurrence: None)
  Receive Date: 20070523
  Receipt Date: 20070514
  Transmission Date: 20071010
  Serious: Yes (Disabling, Other)
  Sender: FDA-Public Use
  Company Number: US-PFIZER INC-2007039838

PATIENT
  Sex: Female
  Weight: 79.545 kg

DRUGS (18)
  1. NEURONTIN [Suspect]
     Indication: DIABETIC NEUROPATHY
  2. LYRICA [Suspect]
     Indication: DIABETIC NEUROPATHY
     Dates: start: 20060101, end: 20070101
  3. ENALAPRIL [Concomitant]
  4. LASIX [Concomitant]
  5. NORVASC [Concomitant]
  6. WARFARIN SODIUM [Concomitant]
  7. LIPITOR [Concomitant]
  8. COLCHICINE [Concomitant]
  9. PEPCID [Concomitant]
  10. ULTRAM [Concomitant]
  11. NITRGLYCERIN TRANSDERMAL SYSTEM [Concomitant]
  12. VITAMINS [Concomitant]
  13. VITAMIN B6 [Concomitant]
  14. VITAMIN B-12 [Concomitant]
  15. FOLIC ACID [Concomitant]
  16. ACIDOPHILUS [Concomitant]
  17. CENTRUM SILVER [Concomitant]
  18. ALL OTHER THERAPEUTIC PRODUCTS [Concomitant]

REACTIONS (5)
  - ACTIVITIES OF DAILY LIVING IMPAIRED [None]
  - DRUG INEFFECTIVE [None]
  - HYPOAESTHESIA [None]
  - MENTAL IMPAIRMENT [None]
  - SOMNOLENCE [None]
